FAERS Safety Report 16203918 (Version 1)
Quarter: 2019Q2

REPORT INFORMATION
  Report Type: Report from Study
  Country: IN (occurrence: IN)
  Receive Date: 20190416
  Receipt Date: 20190416
  Transmission Date: 20190711
  Serious: Yes (Hospitalization)
  Sender: FDA-Public Use
  Company Number: IN-ELI_LILLY_AND_COMPANY-IN201904007782

PATIENT
  Age: 40 Year
  Sex: Female

DRUGS (2)
  1. INSULIN, LISPRO [Suspect]
     Active Substance: INSULIN LISPRO
     Indication: DIABETES MELLITUS
     Dosage: 12 DOSAGE FORM, EACH MORNING
     Route: 058
     Dates: start: 20190226, end: 20190410
  2. INSULIN, LISPRO [Suspect]
     Active Substance: INSULIN LISPRO
     Dosage: 14 DOSAGE FORM, EACH EVENING
     Route: 058
     Dates: start: 20190226, end: 20190410

REACTIONS (5)
  - Hypothyroidism [Not Recovered/Not Resolved]
  - Dyspnoea [Not Recovered/Not Resolved]
  - Swelling [Not Recovered/Not Resolved]
  - Pyrexia [Unknown]
  - Hyperglycaemia [Not Recovered/Not Resolved]
